FAERS Safety Report 7605080-8 (Version None)
Quarter: 2011Q3

REPORT INFORMATION
  Report Type: 
  Country: None (occurrence: None)
  Receive Date: 20110713
  Receipt Date: 20091031
  Transmission Date: 20111222
  Serious: Yes (Other)
  Sender: FDA-Public Use
  Company Number: US-BAYER-200937707NA

PATIENT
  Age: 43 Year
  Sex: Male
  Weight: 90 kg

DRUGS (23)
  1. CEFAZOLIN [Concomitant]
     Dosage: 1 G, UNK
     Route: 042
     Dates: start: 20060518
  2. ESMOLOL [Concomitant]
     Dosage: UNK
     Route: 042
     Dates: start: 20060518
  3. FRESH FROZEN PLASMA [Concomitant]
     Dosage: 1 U, UNK
     Route: 042
     Dates: start: 20060522
  4. TRASYLOL [Suspect]
     Indication: AORTIC ANEURYSM REPAIR
     Dosage: 200 ML, UNK LOADING DOSE
     Route: 042
     Dates: start: 20060522, end: 20060522
  5. TRASYLOL [Suspect]
     Dosage: 50ML/HR INFUSION
     Route: 042
     Dates: start: 20060522, end: 20060522
  6. PROPOFOL [Concomitant]
     Dosage: MULTIPLE BOLUS GIVEN
     Route: 042
     Dates: start: 20060522, end: 20060522
  7. OMNIPAQUE 140 [Concomitant]
     Dosage: UNK
     Dates: start: 20060516
  8. VANCOMYCIN [Concomitant]
     Dosage: 1 G CONTINUED THROUGH OPERATIVE AND POST OPERATIVE PHASE
     Route: 042
     Dates: start: 20060518
  9. MORPHINE SULFATE [Concomitant]
     Dosage: 2 MG, UNK
     Route: 042
     Dates: start: 20060515
  10. POTASSIUM CHLORIDE [Concomitant]
     Dosage: 40 MEQ, UNK
     Route: 048
  11. VERSED [Concomitant]
     Dosage: 4 MG, UNK
     Route: 042
     Dates: start: 20060522, end: 20060522
  12. WHOLE BLOOD [Concomitant]
     Dosage: 3 U, UNK
     Route: 042
     Dates: start: 20060522
  13. METOPROLOL TARTRATE [Concomitant]
     Dosage: 25 MG, UNK
     Route: 048
     Dates: start: 20060518
  14. TOPROL-XL [Concomitant]
     Dosage: 50 MG, UNK LONG TERM
     Route: 048
  15. NOREPINEPHRINE BITARTRATE [Concomitant]
     Dosage: TITRATED
     Route: 042
     Dates: start: 20060522, end: 20060522
  16. HEPARIN [Concomitant]
     Dosage: 28000 U, UNK
     Route: 042
     Dates: start: 20060522, end: 20060522
  17. ATIVAN [Concomitant]
     Dosage: 1 MG, UNK
     Route: 048
  18. PROTONIX [Concomitant]
     Dosage: 40 MG, UNK, LONG TERM
     Route: 048
  19. ZOSYN [Concomitant]
     Dosage: 3.375 G, UNK
     Route: 042
     Dates: start: 20060518
  20. BENICAR [Concomitant]
     Dosage: 40 MG, UNK LONG TERM
     Route: 048
  21. MORPHINE SULFATE [Concomitant]
     Dosage: 10 MG, UNK
     Route: 042
     Dates: start: 20060522, end: 20060522
  22. FENTANYL-100 [Concomitant]
     Dosage: 1000MCG
     Route: 042
     Dates: start: 20060522, end: 20060522
  23. PLATELETS [Concomitant]
     Dosage: 5 U, UNK
     Route: 042
     Dates: start: 20060522

REACTIONS (5)
  - INJURY [None]
  - PAIN [None]
  - RENAL FAILURE [None]
  - PSYCHIATRIC SYMPTOM [None]
  - UNEVALUABLE EVENT [None]
